FAERS Safety Report 22597082 (Version 1)
Quarter: 2023Q2

REPORT INFORMATION
  Report Type: Spontaneous
  Country: US (occurrence: US)
  Receive Date: 20230613
  Receipt Date: 20230613
  Transmission Date: 20230722
  Serious: Yes (Other)
  Sender: FDA-Public Use
  Company Number: US-drreddys-SPO/USA/23/0166469

PATIENT
  Age: 19 Year

DRUGS (2)
  1. ZENATANE [Suspect]
     Active Substance: ISOTRETINOIN
     Indication: Product used for unknown indication
     Dosage: RMA ISSUE DATE: 12 JANUARY 2023 12:49:29 PM, 17 MARCH 2023 07:33:12 PM, 27 APRIL 2023 06:28:36 PM
  2. ZENATANE [Suspect]
     Active Substance: ISOTRETINOIN
     Dosage: RMA ISSUE DATE: 09 FEBRUARY 2023 03:21:00 PM

REACTIONS (2)
  - Suicidal ideation [Unknown]
  - Depression [Unknown]
